FAERS Safety Report 6454231-X (Version None)
Quarter: 2009Q4

REPORT INFORMATION
  Report Type: 
  Country: None (occurrence: None)
  Receive Date: 20091124
  Receipt Date: 20091109
  Transmission Date: 20100525
  Serious: Yes (Hospitalization)
  Sender: FDA-Public Use
  Company Number: FR-GENENTECH-294459

PATIENT
  Age: 5 Year
  Sex: Male

DRUGS (4)
  1. MABTHERA [Suspect]
     Indication: NEPHROTIC SYNDROME
     Dosage: 375 MG/M2, UNK
     Route: 042
  2. CELLCEPT [Concomitant]
     Indication: NEPHROTIC SYNDROME
     Dosage: UNK
  3. NEORAL [Concomitant]
     Indication: NEPHROTIC SYNDROME
     Dosage: UNK
  4. SOLUPRED [Concomitant]
     Indication: NEPHROTIC SYNDROME
     Dosage: UNK

REACTIONS (1)
  - DIARRHOEA HAEMORRHAGIC [None]
